FAERS Safety Report 9033596 (Version 1)
Quarter: 2013Q1

REPORT INFORMATION
  Report Type: Spontaneous
  Country: AU (occurrence: AU)
  Receive Date: 20130128
  Receipt Date: 20130128
  Transmission Date: 20140127
  Serious: Yes (Other)
  Sender: FDA-Public Use
  Company Number: AU-ELI_LILLY_AND_COMPANY-AU201301005406

PATIENT
  Age: 20 Year
  Sex: Female

DRUGS (2)
  1. CYMBALTA [Suspect]
     Indication: ANXIETY
     Dosage: 120 MG, QD
     Dates: start: 2011
  2. CYMBALTA [Suspect]
     Dosage: 60 MG, QD

REACTIONS (12)
  - Suicidal ideation [Unknown]
  - Weight increased [Unknown]
  - Tachyphrenia [Unknown]
  - Affective disorder [Unknown]
  - Impaired work ability [Unknown]
  - Paraesthesia [Unknown]
  - Insomnia [Unknown]
  - Nausea [Unknown]
  - Vomiting [Unknown]
  - Diarrhoea [Unknown]
  - Hyperhidrosis [Unknown]
  - Drug withdrawal syndrome [Unknown]
